FAERS Safety Report 19441311 (Version 1)
Quarter: 2021Q2

REPORT INFORMATION
  Report Type: Spontaneous
  Country: GB (occurrence: GB)
  Receive Date: 20210621
  Receipt Date: 20210621
  Transmission Date: 20210717
  Serious: Yes (Hospitalization)
  Sender: FDA-Public Use
  Company Number: GB-TEVA-2021-GB-1924388

PATIENT
  Age: 98 Year
  Sex: Female

DRUGS (1)
  1. OMEPRAZOLE. [Suspect]
     Active Substance: OMEPRAZOLE
     Indication: PRODUCT USED FOR UNKNOWN INDICATION
     Dosage: 20 MG
     Route: 065

REACTIONS (9)
  - Pain [Unknown]
  - Gastrooesophageal reflux disease [Unknown]
  - Regurgitation [Unknown]
  - Stress [Unknown]
  - X-ray of pelvis and hip abnormal [Unknown]
  - Gait disturbance [Unknown]
  - Diarrhoea [Unknown]
  - Fall [Unknown]
  - Bladder disorder [Unknown]

NARRATIVE: CASE EVENT DATE: 202003
